FAERS Safety Report 7915097-1 (Version None)
Quarter: 2011Q4

REPORT INFORMATION
  Report Type: 
  Country: None (occurrence: None)
  Receive Date: 20111115
  Receipt Date: 20111110
  Transmission Date: 20120403
  Serious: No
  Sender: FDA-Public Use
  Company Number: BR-MERCK-1111BRA00029

PATIENT
  Age: 86 Year
  Sex: Male
  Weight: 70 kg

DRUGS (10)
  1. DIPYRONE [Concomitant]
     Route: 065
  2. ONDANSETRON HYDROCHLORIDE [Concomitant]
     Route: 065
  3. TRAMADOL HYDROCHLORIDE [Concomitant]
     Indication: PAIN
     Route: 065
  4. TEICOPLANIN [Concomitant]
     Route: 065
  5. ENOXAPARIN SODIUM [Concomitant]
     Route: 065
  6. PANTOPRAZOLE [Concomitant]
     Route: 065
  7. INVANZ [Suspect]
     Indication: POST PROCEDURAL INFECTION
     Route: 065
     Dates: start: 20111005, end: 20111027
  8. DIAZEPAM [Concomitant]
     Route: 065
  9. NYSTATIN AND ZINC OXIDE [Concomitant]
     Route: 065
  10. CORIANDER AND INDIAN LABURNUM AND LICORICE AND SENNA AND TAMARIND [Concomitant]
     Route: 065

REACTIONS (2)
  - RASH [None]
  - HYPERAEMIA [None]
